FAERS Safety Report 8490175-X (Version None)
Quarter: 2012Q3

REPORT INFORMATION
  Report Type: 
  Country: None (occurrence: None)
  Receive Date: 20120705
  Receipt Date: 20110715
  Transmission Date: 20120928
  Serious: No
  Sender: FDA-Public Use
  Company Number: US-BAUSCH-2011BL002778

PATIENT
  Age: 76 Year
  Sex: Male

DRUGS (3)
  1. OPCON-A [Suspect]
     Indication: DRY EYE
     Route: 047
     Dates: start: 20110401, end: 20110401
  2. MULTI-VITAMINS [Concomitant]
  3. OPCON-A [Suspect]
     Indication: EYE PRURITUS
     Route: 047
     Dates: start: 20110401, end: 20110401

REACTIONS (1)
  - INSTILLATION SITE PAIN [None]
